FAERS Safety Report 7957833-4 (Version None)
Quarter: 2011Q4

REPORT INFORMATION
  Report Type: 
  Country: None (occurrence: None)
  Receive Date: 20111205
  Receipt Date: 20111124
  Transmission Date: 20120403
  Serious: Yes (Other)
  Sender: FDA-Public Use
  Company Number: CH-ASTRAZENECA-2011SE71743

PATIENT
  Age: 72 Year
  Sex: Male
  Weight: 61.3 kg

DRUGS (10)
  1. NORVASC [Concomitant]
  2. OXAZEPAM [Concomitant]
     Route: 048
     Dates: start: 20110923, end: 20110923
  3. SEROQUEL [Suspect]
     Route: 048
  4. OXAZEPAM [Concomitant]
     Route: 048
  5. OXAZEPAM [Concomitant]
     Route: 048
     Dates: start: 20110927, end: 20110928
  6. OXAZEPAM [Concomitant]
     Dosage: THREE DOSES OF 7.5 MG
     Route: 048
     Dates: start: 20110924, end: 20110924
  7. LORAZEPAM [Suspect]
     Dosage: 1 MG TOTAL
     Route: 060
     Dates: start: 20110929, end: 20110929
  8. HALDOL [Suspect]
     Route: 058
     Dates: end: 20110929
  9. OXAZEPAM [Concomitant]
     Route: 048
     Dates: start: 20110925, end: 20110925
  10. LISINOPRIL [Concomitant]

REACTIONS (1)
  - LOSS OF CONSCIOUSNESS [None]
